FAERS Safety Report 14919677 (Version 1)
Quarter: 2018Q2

REPORT INFORMATION
  Report Type: Spontaneous
  Country: US (occurrence: US)
  Receive Date: 20180521
  Receipt Date: 20180521
  Transmission Date: 20180711
  Serious: No
  Sender: FDA-Public Use
  Company Number: US-NEOS THERAPEUTICS, LP-2018NEO00028

PATIENT
  Age: 26 Year
  Sex: Male
  Weight: 58.96 kg

DRUGS (2)
  1. ADZENYS XR-ODT [Suspect]
     Active Substance: AMPHETAMINE
     Indication: ATTENTION DEFICIT/HYPERACTIVITY DISORDER
     Dosage: 18.8 MG, 1X/DAY
     Route: 048
  2. ADZENYS XR-ODT [Suspect]
     Active Substance: AMPHETAMINE
     Indication: ATTENTION DEFICIT/HYPERACTIVITY DISORDER
     Dosage: 25 MG, 1X/DAY
     Route: 048
     Dates: start: 20180228

REACTIONS (2)
  - Drug effect decreased [Not Recovered/Not Resolved]
  - Sluggishness [Not Recovered/Not Resolved]

NARRATIVE: CASE EVENT DATE: 2018
